FAERS Safety Report 6544652-9 (Version None)
Quarter: 2010Q1

REPORT INFORMATION
  Report Type: 
  Country: None (occurrence: None)
  Receive Date: 20100121
  Receipt Date: 20100115
  Transmission Date: 20100710
  Serious: Yes (Hospitalization)
  Sender: FDA-Public Use
  Company Number: JP-JNJFOC-20090300145

PATIENT
  Sex: Female
  Weight: 53 kg

DRUGS (33)
  1. GOLIMUMAB [Suspect]
     Indication: RHEUMATOID ARTHRITIS
     Dosage: 7TH TIME IN WEEK 24
     Route: 058
  2. GOLIMUMAB [Suspect]
     Dosage: 7TH TIME IN WEEK 24
     Route: 058
  3. GOLIMUMAB [Suspect]
     Dosage: 7TH TIME IN WEEK 24
     Route: 058
  4. GOLIMUMAB [Suspect]
     Dosage: 7TH TIME IN WEEK 24
     Route: 058
  5. GOLIMUMAB [Suspect]
     Dosage: 7TH TIME IN WEEK 24
     Route: 058
  6. GOLIMUMAB [Suspect]
     Dosage: 7TH TIME IN WEEK 24
     Route: 058
  7. GOLIMUMAB [Suspect]
     Dosage: 7TH TIME IN WEEK 24
     Route: 058
  8. METHOTREXATE [Suspect]
     Indication: RHEUMATOID ARTHRITIS
     Route: 048
  9. PREDNISOLONE [Suspect]
     Indication: INFECTION
     Dosage: INFECTION TREATMENT
     Route: 048
  10. PREDNISOLONE [Suspect]
     Dosage: TREATMENT INFECTION
     Route: 048
  11. PREDNISOLONE [Suspect]
     Route: 048
  12. PREDNISOLONE [Suspect]
     Dosage: TREATMENT INFECTION
     Route: 048
  13. PREDNISOLONE [Suspect]
     Dosage: TREATMENT INFECTION
     Route: 048
  14. PREDNISOLONE [Suspect]
     Indication: RHEUMATOID ARTHRITIS
     Route: 048
  15. PREDNISOLONE [Suspect]
     Dosage: TREATMENT INFECTION
     Route: 048
  16. PREDNISOLONE [Suspect]
     Dosage: INFECTION TREATMENT
     Route: 048
  17. PREDNISOLONE [Suspect]
     Dosage: TREATMENT INFECTION
     Route: 048
  18. PREDNISOLONE [Suspect]
     Dosage: TREATMENT INFECTION
     Route: 048
  19. GASPORT [Concomitant]
     Indication: PROPHYLAXIS
     Route: 048
  20. INDOMETHACIN [Concomitant]
     Indication: RHEUMATOID ARTHRITIS
     Route: 048
  21. MUCOSTA [Concomitant]
     Indication: PROPHYLAXIS
     Route: 048
  22. MUCOSTA [Concomitant]
     Route: 048
  23. FOLIAMIN [Concomitant]
     Indication: PROPHYLAXIS
     Route: 048
  24. CARBOCISTEINE [Concomitant]
     Indication: EUSTACHIAN TUBE STENOSIS
     Route: 048
  25. MOHRUS TAPE [Concomitant]
     Indication: RHEUMATOID ARTHRITIS
     Route: 062
  26. ADEFURONIC [Concomitant]
     Indication: PYREXIA
     Route: 054
  27. ADEFURONIC [Concomitant]
     Indication: RHEUMATOID ARTHRITIS
     Route: 054
  28. SENNOSIDE [Concomitant]
     Indication: CONSTIPATION
     Route: 048
  29. ISODINE GARGLE [Concomitant]
     Indication: PROPHYLAXIS
     Route: 002
  30. PREDNISOLONE [Concomitant]
     Route: 048
  31. PREDNISOLONE [Concomitant]
     Route: 048
  32. PREDNISOLONE [Concomitant]
     Route: 048
  33. PREDNISOLONE [Concomitant]
     Route: 048

REACTIONS (1)
  - PNEUMOCYSTIS JIROVECI PNEUMONIA [None]
